FAERS Safety Report 15803228 (Version 1)
Quarter: 2019Q1

REPORT INFORMATION
  Report Type: Spontaneous
  Country: CA (occurrence: CA)
  Receive Date: 20190109
  Receipt Date: 20190109
  Transmission Date: 20190417
  Serious: Yes (Other)
  Sender: FDA-Public Use
  Company Number: CA-PFIZER INC-2019007966

PATIENT
  Age: 31 Year
  Sex: Female
  Weight: 90 kg

DRUGS (1)
  1. MAGNESIUM SULFATE. [Suspect]
     Active Substance: MAGNESIUM SULFATE
     Indication: PRE-ECLAMPSIA
     Dosage: 4 G, UNK
     Route: 042

REACTIONS (14)
  - Blood pressure decreased [Recovering/Resolving]
  - Dyspnoea [Recovering/Resolving]
  - Swollen tongue [Recovering/Resolving]
  - Chest discomfort [Recovering/Resolving]
  - Dysarthria [Recovering/Resolving]
  - Nausea [Recovering/Resolving]
  - Skin warm [Recovering/Resolving]
  - Hyperhidrosis [Recovering/Resolving]
  - Hyporeflexia [Recovering/Resolving]
  - Movement disorder [Recovering/Resolving]
  - Throat tightness [Recovering/Resolving]
  - Vision blurred [Recovering/Resolving]
  - Flushing [Recovering/Resolving]
  - Vomiting [Recovering/Resolving]
